FAERS Safety Report 24914245 (Version 1)
Quarter: 2025Q1

REPORT INFORMATION
  Report Type: Spontaneous
  Country: IR (occurrence: None)
  Receive Date: 20250202
  Receipt Date: 20250202
  Transmission Date: 20250408
  Serious: Yes (Other)
  Sender: Alvotech
  Company Number: IR-ALVOTECHPMS-2025-ALVOTECHPMS-002952

PATIENT
  Age: 38 Year
  Sex: Female

DRUGS (1)
  1. ADALIMUMAB [Suspect]
     Active Substance: ADALIMUMAB
     Indication: Psoriatic arthropathy
     Dosage: (40MG SUBCUTANEOUS EVERY 2WEEKS)
     Route: 058

REACTIONS (1)
  - Cutaneous lupus erythematosus [Recovered/Resolved]
